FAERS Safety Report 25602894 (Version 2)
Quarter: 2025Q3

REPORT INFORMATION
  Report Type: Spontaneous
  Country: CN (occurrence: CN)
  Receive Date: 20250724
  Receipt Date: 20250808
  Transmission Date: 20251021
  Serious: Yes (Hospitalization)
  Sender: MERCK SHARP & DOHME LLC
  Company Number: CN-009507513-2304879

PATIENT
  Age: 52 Year
  Sex: Male
  Weight: 62 kg

DRUGS (3)
  1. KEYTRUDA [Suspect]
     Active Substance: PEMBROLIZUMAB
     Indication: Lung adenocarcinoma stage IV
     Dosage: 200MG, Q3W
     Route: 041
     Dates: start: 20250604, end: 20250604
  2. CARBOPLATIN [Concomitant]
     Active Substance: CARBOPLATIN
     Indication: Lung adenocarcinoma stage IV
     Route: 041
     Dates: start: 20250605, end: 20250605
  3. PEMETREXED [Concomitant]
     Active Substance: PEMETREXED
     Indication: Lung adenocarcinoma stage IV
     Route: 041
     Dates: start: 20250605, end: 20250605

REACTIONS (9)
  - Toxic goitre [Unknown]
  - Thyroxine free decreased [Unknown]
  - Myoglobin blood increased [Unknown]
  - Tri-iodothyronine decreased [Unknown]
  - Blood glucose increased [Unknown]
  - Troponin I increased [Unknown]
  - Lymphadenopathy [Unknown]
  - Blood creatine phosphokinase MB increased [Unknown]
  - Lymphadenitis [Unknown]

NARRATIVE: CASE EVENT DATE: 20250101
